FAERS Safety Report 23522785 (Version 6)
Quarter: 2024Q1

REPORT INFORMATION
  Report Type: Report from Study
  Country: US (occurrence: US)
  Receive Date: 20240214
  Receipt Date: 20240328
  Transmission Date: 20240409
  Serious: No
  Sender: FDA-Public Use
  Company Number: US-AstraZeneca-CH-00561203A

PATIENT
  Age: 54 Year
  Sex: Female

DRUGS (2)
  1. STRENSIQ [Suspect]
     Active Substance: ASFOTASE ALFA
     Indication: Product used for unknown indication
     Dosage: UNK
     Route: 065
  2. SKYRIZI [Concomitant]
     Active Substance: RISANKIZUMAB-RZAA
     Indication: Product used for unknown indication
     Dosage: UNK
     Route: 065

REACTIONS (37)
  - Oropharyngeal pain [Not Recovered/Not Resolved]
  - Gastrooesophageal reflux disease [Not Recovered/Not Resolved]
  - Poor quality sleep [Not Recovered/Not Resolved]
  - Mucosal inflammation [Unknown]
  - Sneezing [Unknown]
  - Respiratory tract congestion [Unknown]
  - Pruritus [Unknown]
  - Arthralgia [Unknown]
  - Peripheral swelling [Not Recovered/Not Resolved]
  - Injection site paraesthesia [Unknown]
  - Hiatus hernia [Unknown]
  - Inadvertent injection air bubble [Unknown]
  - Pain of skin [Not Recovered/Not Resolved]
  - Bone pain [Recovering/Resolving]
  - Tinnitus [Not Recovered/Not Resolved]
  - Paraesthesia [Unknown]
  - Bruxism [Unknown]
  - Haemorrhage [Unknown]
  - Influenza [Unknown]
  - Ear pain [Unknown]
  - Skin lesion [Unknown]
  - Skin fissures [Unknown]
  - Headache [Not Recovered/Not Resolved]
  - Pain in extremity [Not Recovered/Not Resolved]
  - Arthritis [Recovering/Resolving]
  - Pain in jaw [Unknown]
  - Diarrhoea [Not Recovered/Not Resolved]
  - Aphonia [Recovering/Resolving]
  - Injection site swelling [Recovered/Resolved]
  - Injection site bruising [Unknown]
  - Injection site pain [Unknown]
  - Psoriasis [Unknown]
  - Pain [Unknown]
  - Restless legs syndrome [Unknown]
  - Balance disorder [Not Recovered/Not Resolved]
  - Injection site haemorrhage [Unknown]
  - Sensitive skin [Unknown]

NARRATIVE: CASE EVENT DATE: 20240201
